FAERS Safety Report 5023273-3 (Version None)
Quarter: 2006Q2

REPORT INFORMATION
  Report Type: 
  Country: None (occurrence: None)
  Receive Date: 20060606
  Receipt Date: 20050923
  Transmission Date: 20061013
  Serious: Yes (Death)
  Sender: FDA-Public Use
  Company Number: 225657

PATIENT
  Age: 73 Year
  Sex: Male
  Weight: 77.5 kg

DRUGS (8)
  1. MABTHERA (RITUXIMAB) CONC FOR SOLUTION FOR INFUSION [Suspect]
     Indication: NON-HODGKIN'S LYMPHOMA
     Dosage: 375 MG/M2, Q4W, INTRAVENOUS
     Route: 042
     Dates: start: 20050128, end: 20050604
  2. FLUDARABINE [Suspect]
     Indication: NON-HODGKIN'S LYMPHOMA
     Dosage: 25 MG/M2, Q4W, INTRAVENOUS
     Route: 042
     Dates: start: 20050126, end: 20050604
  3. CYCLOPHOSPHAMIDE [Suspect]
     Indication: NON-HODGKIN'S LYMPHOMA
     Dosage: 100 MG/M2, Q4W, INTRAVENOUS
     Route: 042
     Dates: start: 20050126, end: 20050602
  4. NICOTINE [Concomitant]
  5. DIGOXIN [Concomitant]
  6. GENTAMICIN [Concomitant]
  7. VENTOLIN (ALBUTEROL/ALBUTEROL SULFATE) [Concomitant]
  8. MEDICATON (UNK INGREDIENT) (GENERIC COMPONENT(S) NOT KNOWN) [Concomitant]

REACTIONS (5)
  - ATRIAL FIBRILLATION [None]
  - CARDIAC ARREST [None]
  - HEART RATE INCREASED [None]
  - OBLITERATIVE BRONCHIOLITIS [None]
  - RESPIRATORY FAILURE [None]
